FAERS Safety Report 5383605-3 (Version None)
Quarter: 2007Q3

REPORT INFORMATION
  Report Type: 
  Country: None (occurrence: None)
  Receive Date: 20070706
  Receipt Date: 20070620
  Transmission Date: 20080115
  Serious: Yes (Death, Life-Threatening)
  Sender: FDA-Public Use
  Company Number: WAES 0706USA04573

PATIENT
  Age: 23 Year
  Sex: Female

DRUGS (5)
  1. DEXAMETHASONE [Suspect]
     Indication: EWING'S SARCOMA
     Dosage: 40 MG/M[2]/DAILY
  2. CYCLOPHOSPHAMIDE [Suspect]
     Dosage: 2000 MG/M[2]/DAILY
  3. ETOPOSIDE [Suspect]
     Dosage: 400 MG/M [2] /DAILY
  4. CARBOPLATIN [Suspect]
     Dosage: 300 MG/M [2] /DAILY
  5. DACTINOMYCIN [Concomitant]

REACTIONS (6)
  - EWING'S SARCOMA [None]
  - LEUKOPENIA [None]
  - MALIGNANT NEOPLASM PROGRESSION [None]
  - NEUTROPENIA [None]
  - STEM CELL TRANSPLANT [None]
  - THROMBOCYTOPENIA [None]
